FAERS Safety Report 8301515-6 (Version None)
Quarter: 2012Q2

REPORT INFORMATION
  Report Type: 
  Country: None (occurrence: None)
  Receive Date: 20120420
  Receipt Date: 20120416
  Transmission Date: 20120825
  Serious: Yes (Other)
  Sender: FDA-Public Use
  Company Number: PHHY2012FR027219

PATIENT
  Sex: Female
  Weight: 42 kg

DRUGS (3)
  1. PREDNISONE TAB [Concomitant]
  2. DOXYCYCLINE SANDOZ [Suspect]
     Indication: ROSACEA
     Dosage: 100 MG, UNK
     Route: 048
     Dates: start: 20120321, end: 20120323
  3. METHOTREXATE [Concomitant]

REACTIONS (1)
  - CHOLESTASIS [None]
